FAERS Safety Report 11090135 (Version 2)
Quarter: 2015Q2

REPORT INFORMATION
  Report Type: Spontaneous
  Country: US (occurrence: None)
  Receive Date: 20150501
  Receipt Date: 20150511
  Transmission Date: 20150821
  Serious: Yes (Other)
  Sender: FDA-Public Use
  Company Number: 2015RIS00056

PATIENT
  Age: 75 Year
  Sex: Female

DRUGS (3)
  1. ASPIRIN. [Concomitant]
     Active Substance: ASPIRIN
  2. CIPROFLOXACIN TABLETS 500 MG (CIPROFLOXACIN) TABLET [Suspect]
     Active Substance: CIPROFLOXACIN
     Indication: URINARY TRACT INFECTION
     Dates: start: 201411, end: 201411
  3. OMEPRAZOLE. [Concomitant]
     Active Substance: OMEPRAZOLE

REACTIONS (5)
  - Fall [None]
  - Drug ineffective [None]
  - Tibia fracture [None]
  - Diplopia [None]
  - Urinary tract infection [None]

NARRATIVE: CASE EVENT DATE: 201412
